FAERS Safety Report 7368411-2 (Version None)
Quarter: 2011Q1

REPORT INFORMATION
  Report Type: 
  Country: None (occurrence: None)
  Receive Date: 20110317
  Receipt Date: 20110317
  Transmission Date: 20110831
  Serious: No
  Sender: FDA-Public Use
  Company Number: None

PATIENT
  Age: 11 Month
  Sex: Female

DRUGS (2)
  1. SYNAGIS [Suspect]
     Dosage: RT IM 1 DOSE
     Route: 030
     Dates: start: 20101227
  2. SYNAGIS [Suspect]
     Dosage: RT IM 1 DOSE
     Route: 030
     Dates: start: 20110128

REACTIONS (1)
  - RASH [None]
